FAERS Safety Report 4366614-2 (Version None)
Quarter: 2004Q2

REPORT INFORMATION
  Report Type: 
  Country: None (occurrence: None)
  Receive Date: 20040520
  Receipt Date: 20040430
  Transmission Date: 20050107
  Serious: Yes (Hospitalization)
  Sender: FDA-Public Use
  Company Number: 2004US-00317

PATIENT
  Age: 69 Year
  Sex: Male

DRUGS (5)
  1. LORAZEPAM [Suspect]
     Indication: ANXIETY
     Dosage: 1 MG, QID, ORAL
     Route: 048
     Dates: start: 20040101
  2. XANAX [Concomitant]
  3. OXYCONTIN [Concomitant]
  4. PEPCID [Concomitant]
  5. PROTONIX [Concomitant]

REACTIONS (11)
  - ABDOMINAL PAIN UPPER [None]
  - CHEST PAIN [None]
  - CHILLS [None]
  - DRUG WITHDRAWAL SYNDROME [None]
  - ERUCTATION [None]
  - FLATULENCE [None]
  - HYPERCHLORHYDRIA [None]
  - HYPERHIDROSIS [None]
  - INSOMNIA [None]
  - MYOCARDIAL INFARCTION [None]
  - NERVOUSNESS [None]
